FAERS Safety Report 14028292 (Version 5)
Quarter: 2017Q4

REPORT INFORMATION
  Report Type: Spontaneous
  Country: US (occurrence: US)
  Receive Date: 20170930
  Receipt Date: 20171027
  Transmission Date: 20180321
  Serious: Yes (Hospitalization, Disabling, Other)
  Sender: FDA-Public Use
  Company Number: US-009507513-1709USA014052

PATIENT
  Age: 50 Year
  Sex: Female
  Weight: 60.87 kg

DRUGS (31)
  1. MORPHINE [Concomitant]
     Active Substance: MORPHINE
     Dosage: 1 DF, HS (BEDTIME)
     Route: 048
  2. PHENERGAN [Suspect]
     Active Substance: PROMETHAZINE HYDROCHLORIDE
     Indication: NAUSEA
     Dosage: 1 DF, Q4H
     Route: 048
  3. IMODIUM [Suspect]
     Active Substance: LOPERAMIDE HYDROCHLORIDE
     Indication: DIARRHOEA
     Dosage: 1 CAPSULE 4 TIMES DAILY AS NEEDED
     Route: 048
  4. DOCUSATE SODIUM (+) SENNOSIDES [Suspect]
     Active Substance: DOCUSATE SODIUM\SENNOSIDES
     Indication: PAIN
     Dosage: 2 DF, QD, HOLD IF DIARRHEA OR LOOSE BOWEL MOVEMENTS
  5. COLACE [Suspect]
     Active Substance: DOCUSATE SODIUM
     Indication: CONSTIPATION
     Dosage: 1 DF, QD
     Route: 048
  6. FERROUS SULFATE. [Suspect]
     Active Substance: FERROUS SULFATE
     Dosage: 1 DF, QD
     Route: 048
  7. XYLOCAINE [Suspect]
     Active Substance: LIDOCAINE HYDROCHLORIDE
  8. LACTAID [Suspect]
     Active Substance: LACTASE
     Dosage: CONCENTRATION:3000 UNITS, 1-2 TABLETS BEFORE MEALS WITH MILK/MILK PRODUCTS
     Route: 048
  9. SIMETHICONE (DIMETHICONE) [Suspect]
     Active Substance: DIMETHICONE
     Dosage: 1 DF, TID, WITH MEALS
     Route: 048
  10. VITAMIN B COMPLEX [Suspect]
     Active Substance: CYANOCOBALAMIN\DEXPANTHENOL\NIACINAMIDE\PYRIDOXINE HYDROCHLORIDE\RIBOFLAVIN 5^-PHOSPHATE SODIUM\THIAMINE HYDROCHLORIDE\VITAMIN B COMPLEX
     Dosage: 1 DF, QD
     Route: 048
  11. MAALOX ANTACID [Suspect]
     Active Substance: ALUMINUM HYDROXIDE\DIMETHICONE\MAGNESIUM HYDROXIDE
     Dosage: UNK
  12. BOSULIF [Suspect]
     Active Substance: BOSUTINIB MONOHYDRATE
     Indication: CHRONIC MYELOID LEUKAEMIA
     Dosage: 4 DF, QD
     Route: 048
     Dates: start: 20160328
  13. ROBAXIN [Suspect]
     Active Substance: METHOCARBAMOL
     Indication: MUSCLE SPASMS
     Dosage: TID 1-1.5 TABLETS
     Route: 048
  14. SELENIUM SULFIDE. [Suspect]
     Active Substance: SELENIUM SULFIDE
     Dosage: 1 BOTTLE, QD
     Route: 061
  15. K-TAB [Suspect]
     Active Substance: POTASSIUM CHLORIDE
     Indication: MUSCLE SPASMS
     Dosage: 1 DF, QD
     Route: 048
  16. OXYCODONE HYDROCHLORIDE. [Concomitant]
     Active Substance: OXYCODONE HYDROCHLORIDE
     Dosage: 1 DF, QID
     Route: 048
  17. MAXALT-MLT [Suspect]
     Active Substance: RIZATRIPTAN BENZOATE
     Indication: MIGRAINE
     Dosage: 1 DF, QD
     Route: 060
  18. PREDNISONE. [Suspect]
     Active Substance: PREDNISONE
     Indication: CHRONIC MYELOID LEUKAEMIA
     Dosage: 10 MG, QD
     Route: 048
  19. FLONASE [Suspect]
     Active Substance: FLUTICASONE PROPIONATE
     Indication: HYPERSENSITIVITY
     Dosage: 2 SPRAYS INTO BOTH NOSTRILS, QD
  20. PHENERGAN [Suspect]
     Active Substance: PROMETHAZINE HYDROCHLORIDE
     Indication: NAUSEA
     Dosage: 1 DF, Q6H AS NEEDED
     Route: 054
  21. ZOFRAN [Suspect]
     Active Substance: ONDANSETRON HYDROCHLORIDE
     Dosage: AS NEEDED
     Route: 048
  22. BENADRYL [Suspect]
     Active Substance: DIPHENHYDRAMINE HYDROCHLORIDE
     Dosage: UNK
  23. DOXYCYCLINE. [Concomitant]
     Active Substance: DOXYCYCLINE
     Dosage: 100 MG, QD
  24. LIDEX-E [Suspect]
     Active Substance: FLUOCINONIDE
     Indication: CHRONIC MYELOID LEUKAEMIA
     Dosage: BID, 1 APPLICATION EXTERNALLY
     Route: 061
  25. ROBAXIN [Suspect]
     Active Substance: METHOCARBAMOL
     Dosage: TAKE IF NEEDED
     Route: 048
  26. PHENERGAN [Suspect]
     Active Substance: PROMETHAZINE HYDROCHLORIDE
     Indication: VOMITING
  27. ERGOCALCIFEROL. [Suspect]
     Active Substance: ERGOCALCIFEROL
     Dosage: 1 DF, QW, CONCENTRATION: 50000 UNITS
     Route: 048
  28. ROBAXIN [Suspect]
     Active Substance: METHOCARBAMOL
     Dosage: TAKE IF NEEDED
     Route: 048
  29. FLEXERIL [Concomitant]
     Active Substance: CYCLOBENZAPRINE HYDROCHLORIDE
     Indication: PAIN
     Dosage: UNK
  30. ZOFRAN [Suspect]
     Active Substance: ONDANSETRON HYDROCHLORIDE
     Indication: NAUSEA
     Dosage: 1 DF, Q8H, TAKE IF NEEDED
     Route: 048
  31. TYLENOL [Suspect]
     Active Substance: ACETAMINOPHEN
     Indication: PAIN
     Dosage: 325-650 MG, Q4H AS NEEDED
     Route: 048

REACTIONS (13)
  - Agitation [Recovering/Resolving]
  - Muscular weakness [Unknown]
  - Arthralgia [Recovering/Resolving]
  - Pain [Recovering/Resolving]
  - Drug dependence [Unknown]
  - Gastroenteritis viral [Unknown]
  - Complex regional pain syndrome [Unknown]
  - Peroneal nerve palsy [Recovering/Resolving]
  - Vomiting [Unknown]
  - Sensory loss [Recovering/Resolving]
  - Intervertebral disc disorder [Unknown]
  - Lumbar radiculopathy [Unknown]
  - Hyperaesthesia [Recovering/Resolving]

NARRATIVE: CASE EVENT DATE: 2017
